FAERS Safety Report 4762462-X (Version None)
Quarter: 2005Q3

REPORT INFORMATION
  Report Type: 
  Country: None (occurrence: None)
  Receive Date: 20050907
  Receipt Date: 20050901
  Transmission Date: 20060218
  Serious: Yes (Other)
  Sender: FDA-Public Use
  Company Number: PHNU2005DE03045

PATIENT
  Age: 88 Year
  Sex: Male

DRUGS (1)
  1. EMSELEX EXTENDED RELEASE [Suspect]
     Indication: POLLAKIURIA
     Dosage: 7.5 MG, QD
     Route: 048
     Dates: start: 20050502, end: 20050727

REACTIONS (4)
  - MICTURITION DISORDER [None]
  - MICTURITION URGENCY [None]
  - NEUROGENIC BLADDER [None]
  - POLYNEUROPATHY [None]
